FAERS Safety Report 6565417-8 (Version None)
Quarter: 2010Q1

REPORT INFORMATION
  Report Type: 
  Country: None (occurrence: None)
  Receive Date: 20100201
  Receipt Date: 20100120
  Transmission Date: 20100710
  Serious: Yes (Other)
  Sender: FDA-Public Use
  Company Number: PHHY2009AU16632

PATIENT
  Age: 15 Year
  Sex: Male

DRUGS (3)
  1. RITALIN LA [Suspect]
     Route: 048
  2. RITALIN [Suspect]
     Dosage: UNK
     Route: 048
     Dates: end: 20090429
  3. ATOMOXETINE HCL [Concomitant]
     Dosage: UNK

REACTIONS (4)
  - ATTENTION DEFICIT/HYPERACTIVITY DISORDER [None]
  - CYANOSIS [None]
  - PERIPHERAL COLDNESS [None]
  - RAYNAUD'S PHENOMENON [None]
